FAERS Safety Report 13285585 (Version 1)
Quarter: 2017Q1

REPORT INFORMATION
  Report Type: Spontaneous
  Country: IE (occurrence: IE)
  Receive Date: 20170301
  Receipt Date: 20170301
  Transmission Date: 20170428
  Serious: Yes (Hospitalization, Other)
  Sender: FDA-Public Use
  Company Number: IE-BRISTOL-MYERS SQUIBB COMPANY-BMS-2017-014812

PATIENT
  Age: 63 Year
  Sex: Female

DRUGS (2)
  1. HYDREA [Suspect]
     Active Substance: HYDROXYUREA
     Indication: PRODUCT USED FOR UNKNOWN INDICATION
     Dosage: 500MG ONCE EVERY SECOND DAY
     Route: 065
     Dates: start: 201607
  2. INFLIXIMAB [Concomitant]
     Active Substance: INFLIXIMAB
     Indication: PRODUCT USED FOR UNKNOWN INDICATION
     Dosage: UNK, QWK
     Route: 065

REACTIONS (6)
  - Fatigue [Unknown]
  - Tuberculosis [Unknown]
  - Cough [Unknown]
  - Sensation of foreign body [Unknown]
  - Dysphonia [Unknown]
  - Tremor [Unknown]
